FAERS Safety Report 15774657 (Version 1)
Quarter: 2018Q4

REPORT INFORMATION
  Report Type: Spontaneous
  Country: SK (occurrence: SK)
  Receive Date: 20181230
  Receipt Date: 20181230
  Transmission Date: 20190205
  Serious: Yes (Other)
  Sender: FDA-Public Use
  Company Number: SK-BAXTER-2018BAX031003

PATIENT
  Sex: Female

DRUGS (7)
  1. METHOTREXATE. [Suspect]
     Active Substance: METHOTREXATE
     Indication: PLASMA CELL MYELOMA
     Dosage: UNK, CYCLIC
     Route: 065
  2. CYTARABINE. [Suspect]
     Active Substance: CYTARABINE
     Indication: PLASMA CELL MYELOMA
     Dosage: 1 CYCLIC CODOX/IVAC REGIMEN
     Route: 065
     Dates: start: 2010
  3. HOLOXAN 2000 MG PRASOK NA INFUZNY ROZTOK [Suspect]
     Active Substance: IFOSFAMIDE
     Indication: PLASMA CELL MYELOMA
     Dosage: 1 CYCLIC CODOX/IVAC REGIMEN
     Route: 065
  4. ENDOXAN 1000 MG PRASOK NA INJEKCNY ROZTOK [Suspect]
     Active Substance: CYCLOPHOSPHAMIDE
     Indication: PLASMA CELL MYELOMA
     Dosage: 1 CYCLIC CODOX/IVAC REGIMEN
     Route: 065
  5. DOXORUBICIN [Suspect]
     Active Substance: DOXORUBICIN
     Indication: PLASMA CELL MYELOMA
     Dosage: 1 CYCLIC CODOX/IVAC REGIMEN
     Route: 065
  6. VINCRISTINE [Suspect]
     Active Substance: VINCRISTINE
     Indication: PLASMA CELL MYELOMA
     Dosage: UNK, CYCLIC
     Route: 065
  7. ETOPOSIDE. [Suspect]
     Active Substance: ETOPOSIDE
     Indication: PLASMA CELL MYELOMA
     Dosage: 1 CYCLIC CODOX/IVAC REGIMEN
     Route: 065

REACTIONS (3)
  - Herpes zoster [Recovered/Resolved]
  - Drug ineffective [Unknown]
  - Type 2 diabetes mellitus [Unknown]

NARRATIVE: CASE EVENT DATE: 201009
